FAERS Safety Report 6044830-1 (Version None)
Quarter: 2009Q1

REPORT INFORMATION
  Report Type: 
  Country: None (occurrence: None)
  Receive Date: 20090120
  Receipt Date: 20090116
  Transmission Date: 20090719
  Serious: Yes (Hospitalization)
  Sender: FDA-Public Use
  Company Number: CN-BRISTOL-MYERS SQUIBB COMPANY-14473896

PATIENT
  Age: 51 Year
  Sex: Female

DRUGS (1)
  1. ENTECAVIR [Suspect]
     Indication: ANTIVIRAL TREATMENT
     Route: 048

REACTIONS (3)
  - ALANINE AMINOTRANSFERASE INCREASED [None]
  - ALPHA 1 FOETOPROTEIN INCREASED [None]
  - BLOOD BILIRUBIN INCREASED [None]
